FAERS Safety Report 24183684 (Version 1)
Quarter: 2024Q3

REPORT INFORMATION
  Report Type: Spontaneous
  Country: PT (occurrence: PT)
  Receive Date: 20240807
  Receipt Date: 20240807
  Transmission Date: 20241016
  Serious: Yes (Other)
  Sender: Atnahs Healthcare
  Company Number: PT-AUROBINDO-AUR-APL-2024-037289

PATIENT
  Age: 85 Year
  Sex: Female

DRUGS (1)
  1. NAPROXEN [Suspect]
     Active Substance: NAPROXEN
     Indication: Product used for unknown indication
     Dosage: UNK UNK, CYCLICAL (MONTHLY CYCLES (OF 10 DAYS) OF NAPROXEN); CYCLICAL
     Dates: start: 2021

REACTIONS (1)
  - Iron deficiency anaemia [Unknown]
